FAERS Safety Report 20091138 (Version 1)
Quarter: 2021Q4

REPORT INFORMATION
  Report Type: Spontaneous
  Country: US (occurrence: None)
  Receive Date: 20211118
  Receipt Date: 20211118
  Transmission Date: 20220304
  Serious: No
  Sender: FDA-Public Use
  Company Number: None

PATIENT

DRUGS (2)
  1. MAGNESIUM SULFATE [Suspect]
     Active Substance: MAGNESIUM SULFATE
     Route: 042
  2. MAGNESIUM SULFATE [Suspect]
     Active Substance: MAGNESIUM SULFATE
     Route: 042

REACTIONS (5)
  - Product packaging confusion [None]
  - Product use complaint [None]
  - Product barcode issue [None]
  - Product label confusion [None]
  - Product design issue [None]
